FAERS Safety Report 22141380 (Version 1)
Quarter: 2023Q1

REPORT INFORMATION
  Report Type: Spontaneous
  Country: US (occurrence: US)
  Receive Date: 20230327
  Receipt Date: 20230327
  Transmission Date: 20230418
  Serious: Yes (Other)
  Sender: FDA-Public Use
  Company Number: US-PFIZER INC-202300127517

PATIENT
  Age: 50 Year
  Sex: Female
  Weight: 56.7 kg

DRUGS (1)
  1. LEVETIRACETAM [Suspect]
     Active Substance: LEVETIRACETAM
     Indication: Seizure
     Dosage: 500 MG, 2X/DAY

REACTIONS (13)
  - Systemic lupus erythematosus [Unknown]
  - Fatigue [Unknown]
  - Asthenia [Unknown]
  - Muscle tightness [Unknown]
  - Temporomandibular joint syndrome [Unknown]
  - Nausea [Unknown]
  - Personality change [Unknown]
  - Mood altered [Unknown]
  - Dyspepsia [Unknown]
  - Dry eye [Unknown]
  - Intraocular pressure increased [Unknown]
  - Depression [Unknown]
  - Illness [Unknown]

NARRATIVE: CASE EVENT DATE: 20230201
